FAERS Safety Report 5969891-7 (Version None)
Quarter: 2008Q4

REPORT INFORMATION
  Report Type: 
  Country: None (occurrence: None)
  Receive Date: 20081126
  Receipt Date: 20081114
  Transmission Date: 20090506
  Serious: Yes (Death)
  Sender: FDA-Public Use
  Company Number: US-PFIZER INC-2008096645

PATIENT
  Age: 52 Year
  Sex: Female

DRUGS (1)
  1. DILANTIN [Suspect]
     Indication: CONVULSION
     Route: 048
     Dates: start: 20060101

REACTIONS (3)
  - DRUG HYPERSENSITIVITY [None]
  - PRODUCT QUALITY ISSUE [None]
  - STEVENS-JOHNSON SYNDROME [None]
